FAERS Safety Report 10781256 (Version 2)
Quarter: 2015Q1

REPORT INFORMATION
  Report Type: Spontaneous
  Country: US (occurrence: US)
  Receive Date: 20150210
  Receipt Date: 20150210
  Transmission Date: 20150721
  Serious: No
  Sender: FDA-Public Use
  Company Number: US-GLAXOSMITHKLINE-A1087989A

PATIENT
  Age: 46 Year
  Sex: Female

DRUGS (1)
  1. TYKERB [Suspect]
     Active Substance: LAPATINIB DITOSYLATE
     Indication: NEOPLASM MALIGNANT
     Dosage: 250 MG TABLET
     Route: 048
     Dates: start: 20140722

REACTIONS (2)
  - Drug dispensing error [Unknown]
  - Drug administration error [Unknown]

NARRATIVE: CASE EVENT DATE: 20140722
